FAERS Safety Report 9900087 (Version 3)
Quarter: 2014Q1

REPORT INFORMATION
  Report Type: Spontaneous
  Country: US (occurrence: US)
  Receive Date: 20140214
  Receipt Date: 20140312
  Transmission Date: 20141002
  Serious: Yes (Death, Hospitalization)
  Sender: FDA-Public Use
  Company Number: US-BAXTER-2014BAX006406

PATIENT
  Sex: Female

DRUGS (2)
  1. DIANEAL LOW CALCIUM (ULTRABAG) [Suspect]
     Indication: RENAL FAILURE CHRONIC
     Route: 033
     Dates: start: 20131220
  2. RITUXAN [Concomitant]
     Indication: GRANULOMATOSIS WITH POLYANGIITIS
     Dates: start: 201310

REACTIONS (4)
  - Death [Fatal]
  - Pneumonia [Recovering/Resolving]
  - Anaemia [Recovering/Resolving]
  - Peritonitis [Recovering/Resolving]
